FAERS Safety Report 7707192-7 (Version None)
Quarter: 2011Q3

REPORT INFORMATION
  Report Type: 
  Country: None (occurrence: None)
  Receive Date: 20110824
  Receipt Date: 20110809
  Transmission Date: 20111222
  Serious: Yes (Hospitalization, Other)
  Sender: FDA-Public Use
  Company Number: PHHO2011GB13810

PATIENT
  Sex: Female
  Weight: 56 kg

DRUGS (2)
  1. LETROZOLE [Suspect]
     Dosage: 0.5 MG, UNK
  2. ANTIBIOTICS [Concomitant]

REACTIONS (2)
  - MALIGNANT MELANOMA [None]
  - LOWER RESPIRATORY TRACT INFECTION [None]
